FAERS Safety Report 9732974 (Version 5)
Quarter: 2014Q1

REPORT INFORMATION
  Report Type: Report from Study
  Country: AU (occurrence: AU)
  Receive Date: 20131205
  Receipt Date: 20140324
  Transmission Date: 20141002
  Serious: Yes (Other)
  Sender: FDA-Public Use
  Company Number: AU-BAYER-2013-131528

PATIENT
  Sex: 0

DRUGS (4)
  1. REGORAFENIB [Suspect]
     Indication: GASTROINTESTINAL STROMAL TUMOUR
     Dosage: 120 MG/DAY (3X40 MG) 3 WEEKS OUT OF 4
     Route: 048
     Dates: end: 20130916
  2. REGORAFENIB [Suspect]
     Indication: GASTROINTESTINAL STROMAL TUMOUR
     Dosage: 200 MG
     Dates: start: 20131011
  3. REGORAFENIB [Suspect]
     Indication: GASTROINTESTINAL STROMAL TUMOUR
     Dosage: 4 X40 MG=160 MG/D
     Dates: start: 20130303
  4. REGORAFENIB [Suspect]
     Indication: GASTROINTESTINAL STROMAL TUMOUR
     Dosage: 2 X40 MG=80 MG/D
     Dates: start: 20130927

REACTIONS (1)
  - Uveitis [None]
